FAERS Safety Report 5022131-8 (Version None)
Quarter: 2006Q2

REPORT INFORMATION
  Report Type: 
  Country: None (occurrence: None)
  Receive Date: 20060605
  Receipt Date: 20060531
  Transmission Date: 20061013
  Serious: Yes (Life-Threatening)
  Sender: FDA-Public Use
  Company Number: 2006-143355-NL

PATIENT
  Age: 40 Year
  Sex: Male

DRUGS (3)
  1. MIRTAZAPINE [Suspect]
     Indication: DEPRESSION
  2. RISPERIDONE [Suspect]
     Indication: SCHIZOPHRENIA
     Dosage: 8 MG/7 MG/3 MG
  3. BIPERIDEN HYDROCHLORIDE TAB [Concomitant]

REACTIONS (3)
  - DEPRESSION [None]
  - PULMONARY EMBOLISM [None]
  - RHABDOMYOLYSIS [None]
